FAERS Safety Report 21565115 (Version 1)
Quarter: 2022Q4

REPORT INFORMATION
  Report Type: Spontaneous
  Country: US (occurrence: US)
  Receive Date: 20221108
  Receipt Date: 20221108
  Transmission Date: 20230113
  Serious: No
  Sender: FDA-Public Use
  Company Number: US-TEVA-2022-US-2819371

PATIENT
  Age: 59 Year
  Sex: Female

DRUGS (3)
  1. LEVOCETIRIZINE DIHYDROCHLORIDE [Suspect]
     Active Substance: LEVOCETIRIZINE DIHYDROCHLORIDE
     Indication: Hypersensitivity
     Route: 065
  2. cranberry supplement [Concomitant]
     Indication: Product used for unknown indication
  3. PREDNISONE [Concomitant]
     Active Substance: PREDNISONE
     Indication: Product used for unknown indication

REACTIONS (9)
  - Hypersensitivity [Not Recovered/Not Resolved]
  - Allergy to fermented products [Not Recovered/Not Resolved]
  - Productive cough [Unknown]
  - Allergic reaction to excipient [Recovered/Resolved with Sequelae]
  - Dyspepsia [Recovered/Resolved]
  - Rash [Recovered/Resolved]
  - Mass [Recovered/Resolved]
  - Abdominal distension [Recovered/Resolved]
  - Adverse drug reaction [Unknown]
